FAERS Safety Report 14411749 (Version 2)
Quarter: 2018Q2

REPORT INFORMATION
  Report Type: Spontaneous
  Country: US (occurrence: US)
  Receive Date: 20180119
  Receipt Date: 20180531
  Transmission Date: 20180711
  Serious: No
  Sender: FDA-Public Use
  Company Number: US-LEXICON PHARMACEUTICALS, INC-17-1606-01308

PATIENT
  Age: 62 Year
  Sex: Female

DRUGS (10)
  1. POTASSIUM [Concomitant]
     Active Substance: POTASSIUM
  2. TELOTRISTAT ETHYL [Suspect]
     Active Substance: TELOTRISTAT ETHYL
     Indication: CARCINOID TUMOUR OF THE SMALL BOWEL
  3. LEVOTHYROXINE. [Concomitant]
     Active Substance: LEVOTHYROXINE
  4. GABAPENTIN. [Concomitant]
     Active Substance: GABAPENTIN
  5. PROBIOTIC [Concomitant]
     Active Substance: PROBIOTICS NOS
  6. TELOTRISTAT ETHYL [Suspect]
     Active Substance: TELOTRISTAT ETHYL
     Indication: CARCINOID SYNDROME
     Route: 048
     Dates: start: 20170919
  7. GLUTATHIONE [Concomitant]
     Active Substance: GLUTATHIONE
  8. TYLENOL [Concomitant]
     Active Substance: ACETAMINOPHEN
  9. MORPHINE SULF [Concomitant]
     Active Substance: MORPHINE SULFATE
  10. TORSEMIDE. [Concomitant]
     Active Substance: TORSEMIDE

REACTIONS (2)
  - Drug dose omission [Unknown]
  - Arthralgia [Unknown]

NARRATIVE: CASE EVENT DATE: 20171213
